FAERS Safety Report 6261822-8 (Version None)
Quarter: 2009Q3

REPORT INFORMATION
  Report Type: 
  Country: None (occurrence: None)
  Receive Date: 20090709
  Receipt Date: 20090701
  Transmission Date: 20100115
  Serious: Yes (Death, Other)
  Sender: FDA-Public Use
  Company Number: GB-BAXTER-2009BH010305

PATIENT
  Age: 82 Year
  Sex: Male

DRUGS (32)
  1. METRONIDAZOLE [Suspect]
     Indication: PNEUMONIA
     Route: 042
     Dates: start: 20050701, end: 20050704
  2. METRONIDAZOLE [Suspect]
     Indication: OEDEMA
     Route: 042
     Dates: start: 20050701, end: 20050704
  3. METRONIDAZOLE [Suspect]
     Route: 065
     Dates: start: 20050708, end: 20050709
  4. METRONIDAZOLE [Suspect]
     Route: 065
     Dates: start: 20050708, end: 20050709
  5. GENTAMICIN [Suspect]
     Indication: CATHETER PLACEMENT
     Route: 030
     Dates: start: 20050628, end: 20050628
  6. CIPROFLOXACIN REDIBAG [Suspect]
     Indication: PNEUMONIA
     Route: 042
     Dates: start: 20050628, end: 20050630
  7. CIPROFLOXACIN REDIBAG [Suspect]
     Indication: OEDEMA
     Route: 042
     Dates: start: 20050628, end: 20050630
  8. CIPROFLOXACIN [Suspect]
     Indication: PNEUMONIA
     Route: 048
     Dates: start: 20050630, end: 20050702
  9. CIPROFLOXACIN [Suspect]
     Indication: OEDEMA
     Route: 048
     Dates: start: 20050630, end: 20050702
  10. METRONIDAZOLE [Suspect]
     Route: 048
     Dates: start: 20050705, end: 20050706
  11. METRONIDAZOLE [Suspect]
     Route: 048
     Dates: start: 20050705, end: 20050706
  12. FUROSEMIDE [Suspect]
     Indication: URINE OUTPUT DECREASED
     Route: 042
     Dates: start: 20050630, end: 20050708
  13. FUROSEMIDE [Suspect]
     Route: 048
  14. CEFTRIAXONE [Suspect]
     Indication: PNEUMONIA
     Route: 042
     Dates: start: 20050701, end: 20050704
  15. CEFTRIAXONE [Suspect]
     Indication: OEDEMA
     Route: 042
     Dates: start: 20050701, end: 20050704
  16. CALCICHEW D3 [Concomitant]
     Indication: DRUG USE FOR UNKNOWN INDICATION
     Route: 048
     Dates: start: 20050628, end: 20050628
  17. DALTEPARIN SODIUM [Concomitant]
     Indication: DRUG USE FOR UNKNOWN INDICATION
     Route: 058
     Dates: start: 20050705, end: 20050706
  18. DALTEPARIN SODIUM [Concomitant]
     Route: 058
     Dates: start: 20050629, end: 20050629
  19. DOCUSATE [Concomitant]
     Indication: DRUG USE FOR UNKNOWN INDICATION
     Route: 048
     Dates: start: 20050628, end: 20060628
  20. DOTHIEPIN HYDROCHLORIDE [Concomitant]
     Indication: DRUG USE FOR UNKNOWN INDICATION
     Route: 048
     Dates: start: 20050628, end: 20050629
  21. HALOPERIDOL [Concomitant]
     Indication: DRUG USE FOR UNKNOWN INDICATION
     Route: 030
     Dates: start: 20050630, end: 20050701
  22. HYOSCINE [Concomitant]
     Indication: DRUG USE FOR UNKNOWN INDICATION
     Route: 058
     Dates: start: 20050630, end: 20050710
  23. IPRATROPIUM BROMIDE [Concomitant]
     Indication: DRUG USE FOR UNKNOWN INDICATION
     Route: 055
     Dates: start: 20050705
  24. MIDAZOLAM HCL [Concomitant]
     Indication: DRUG USE FOR UNKNOWN INDICATION
     Route: 058
     Dates: start: 20050708
  25. MORPHINE SULFATE [Concomitant]
     Indication: DRUG USE FOR UNKNOWN INDICATION
     Route: 058
     Dates: start: 20050708
  26. MS CONTIN [Concomitant]
     Indication: DRUG USE FOR UNKNOWN INDICATION
     Route: 048
     Dates: start: 20050628, end: 20050629
  27. OMEPRAZOLE [Concomitant]
     Indication: DRUG USE FOR UNKNOWN INDICATION
     Route: 048
     Dates: start: 20050628, end: 20050701
  28. ALBUTEROL [Concomitant]
     Indication: DRUG USE FOR UNKNOWN INDICATION
     Route: 055
     Dates: start: 20050705
  29. SANDO K [Concomitant]
     Indication: DRUG USE FOR UNKNOWN INDICATION
     Route: 048
     Dates: start: 20050708, end: 20050709
  30. SODIUM BICARBONATE [Concomitant]
     Indication: DRUG USE FOR UNKNOWN INDICATION
     Route: 048
     Dates: start: 20050708
  31. TERBUTALINE SULFATE [Concomitant]
     Indication: DRUG USE FOR UNKNOWN INDICATION
     Route: 055
     Dates: start: 20050628, end: 20050705
  32. WARFARIN SODIUM [Concomitant]
     Indication: DRUG USE FOR UNKNOWN INDICATION
     Route: 048
     Dates: start: 20050628, end: 20050628

REACTIONS (11)
  - BLOOD POTASSIUM DECREASED [None]
  - CLOSTRIDIUM DIFFICILE COLITIS [None]
  - COLONIC PSEUDO-OBSTRUCTION [None]
  - CONVULSION [None]
  - HYPERTENSION [None]
  - IMMOBILE [None]
  - INTERNATIONAL NORMALISED RATIO INCREASED [None]
  - PNEUMONIA [None]
  - PULMONARY OEDEMA [None]
  - RENAL FAILURE [None]
  - RENAL FAILURE CHRONIC [None]
